FAERS Safety Report 12517046 (Version 3)
Quarter: 2016Q4

REPORT INFORMATION
  Report Type: Spontaneous
  Country: US (occurrence: US)
  Receive Date: 20160630
  Receipt Date: 20161012
  Transmission Date: 20170207
  Serious: No
  Sender: FDA-Public Use
  Company Number: US-PFIZER INC-2016291779

PATIENT
  Age: 53 Year
  Sex: Female

DRUGS (3)
  1. IBRANCE [Suspect]
     Active Substance: PALBOCICLIB
     Dosage: 125 MG, UNK
     Dates: start: 20160531
  2. FASLODEX [Suspect]
     Active Substance: FULVESTRANT
     Dosage: 250 MG, UNK
     Dates: start: 20160601
  3. IBRANCE [Suspect]
     Active Substance: PALBOCICLIB
     Dosage: 125 MG, UNK
     Dates: start: 20160601

REACTIONS (9)
  - Headache [Unknown]
  - Constipation [Unknown]
  - Back pain [Unknown]
  - Breast pain [Unknown]
  - Somnambulism [Unknown]
  - Pollakiuria [Unknown]
  - Emotional disorder [Unknown]
  - Decreased appetite [Unknown]
  - Alopecia [Unknown]
